FAERS Safety Report 10775392 (Version 1)
Quarter: 2015Q1

REPORT INFORMATION
  Report Type: Report from Study
  Country: CA (occurrence: None)
  Receive Date: 20150205
  Receipt Date: 20150205
  Transmission Date: 20150721
  Serious: Yes (Hospitalization)
  Sender: FDA-Public Use
  Company Number: 2014FE03585

PATIENT
  Age: 84 Year
  Sex: Male

DRUGS (5)
  1. WARFARIN [Concomitant]
     Active Substance: WARFARIN
  2. OMEPRAZOLE. [Concomitant]
     Active Substance: OMEPRAZOLE
  3. DEGARELIX [Suspect]
     Active Substance: DEGARELIX
     Indication: PROSTATE CANCER
     Route: 058
     Dates: start: 20131028
  4. METOPROLOL [Concomitant]
     Active Substance: METOPROLOL
  5. DIURETICS [Concomitant]
     Active Substance: UNSPECIFIED INGREDIENT

REACTIONS (5)
  - Haemoglobin decreased [None]
  - Haematochezia [None]
  - Asthenia [None]
  - Haematuria [None]
  - Cystitis [None]

NARRATIVE: CASE EVENT DATE: 201411
